FAERS Safety Report 23417359 (Version 1)
Quarter: 2024Q1

REPORT INFORMATION
  Report Type: Spontaneous
  Country: US (occurrence: None)
  Receive Date: 20240117
  Receipt Date: 20240117
  Transmission Date: 20240410
  Serious: Yes (Death, Life-Threatening, Hospitalization)
  Sender: FDA-Public Use
  Company Number: None

PATIENT
  Age: 56 Year
  Sex: Male

DRUGS (30)
  1. WEGOVY [Suspect]
     Active Substance: SEMAGLUTIDE
     Indication: Weight decreased
     Dosage: FREQUENCY : WEEKLY;?
     Route: 058
  2. WEGOVY [Suspect]
     Active Substance: SEMAGLUTIDE
     Indication: Diabetes mellitus
  3. Diclofenac (Voltaren) [Concomitant]
  4. ZOLOFT [Concomitant]
     Active Substance: SERTRALINE HYDROCHLORIDE
  5. Ezetimibe (Ezetrol0 [Concomitant]
  6. Empaglifozin (Jardiance) [Concomitant]
  7. Entresto (Sacubitril) / (Valsartan) [Concomitant]
  8. ABILIFY [Concomitant]
     Active Substance: ARIPIPRAZOLE
  9. ZYLOPRIM [Concomitant]
     Active Substance: ALLOPURINOL
  10. SYNTHROID [Concomitant]
     Active Substance: LEVOTHYROXINE SODIUM
  11. PROTONIX [Concomitant]
     Active Substance: PANTOPRAZOLE SODIUM
  12. WELLBUTRIN [Concomitant]
     Active Substance: BUPROPION HYDROCHLORIDE
  13. Diltiazem (Tiazac) [Concomitant]
  14. LASIX [Concomitant]
     Active Substance: FUROSEMIDE
  15. CRESTOR [Concomitant]
     Active Substance: ROSUVASTATIN CALCIUM
  16. Trazodone (Desyrel) [Concomitant]
  17. FLONASE [Concomitant]
     Active Substance: FLUTICASONE PROPIONATE
  18. Azelastine (Astrepo) [Concomitant]
  19. ASCORBIC ACID [Concomitant]
     Active Substance: ASCORBIC ACID
  20. Zinc Sulfate (Zinc-220) [Concomitant]
  21. MINERALS\VITAMINS [Concomitant]
     Active Substance: MINERALS\VITAMINS
  22. Calciferol (Vitamin D-3) [Concomitant]
  23. TUMS [Concomitant]
     Active Substance: CALCIUM CARBONATE
  24. Folic Acid (Folvite) [Concomitant]
  25. Cyanocobalamin (Vitamin B-12) [Concomitant]
  26. Magnesium Sulfate (Heptahydrate, Anhydrous) [Concomitant]
  27. KLOR-CON [Concomitant]
     Active Substance: POTASSIUM CHLORIDE
  28. Thiamine (Vitamin B-1) [Concomitant]
  29. FISH OIL [Concomitant]
     Active Substance: FISH OIL
  30. ASPIRIN [Concomitant]
     Active Substance: ASPIRIN

REACTIONS (7)
  - Pancreatitis acute [None]
  - Pancreatitis necrotising [None]
  - Acute hepatic failure [None]
  - Acute kidney injury [None]
  - Acute respiratory distress syndrome [None]
  - Acute respiratory failure [None]
  - Product complaint [None]

NARRATIVE: CASE EVENT DATE: 20230604
